FAERS Safety Report 8519039-X (Version None)
Quarter: 2012Q3

REPORT INFORMATION
  Report Type: 
  Country: None (occurrence: None)
  Receive Date: 20120718
  Receipt Date: 20120713
  Transmission Date: 20120928
  Serious: Yes (Other)
  Sender: FDA-Public Use
  Company Number: PHEH2012US013869

PATIENT

DRUGS (2)
  1. EXELON [Suspect]
     Dosage: UNK UKN, UNK
     Route: 048
  2. BENZODIAZEPINE [Concomitant]
     Dosage: UNK UKN, UNK

REACTIONS (1)
  - FALL [None]
